FAERS Safety Report 15572723 (Version 2)
Quarter: 2019Q1

REPORT INFORMATION
  Report Type: Spontaneous
  Country: HU (occurrence: HU)
  Receive Date: 20181031
  Receipt Date: 20190128
  Transmission Date: 20190417
  Serious: Yes (Death, Other)
  Sender: FDA-Public Use
  Company Number: PHHY2018HU142560

PATIENT
  Age: 55 Year
  Sex: Male

DRUGS (3)
  1. SANDOSTATIN LAR DEPOT [Suspect]
     Active Substance: OCTREOTIDE ACETATE
     Indication: DIARRHOEA
     Dosage: 20 MG, QMO
     Route: 065
     Dates: start: 20091201
  2. IODINE (131 I) NORCHOLESTEROL [Concomitant]
     Indication: PRODUCT USED FOR UNKNOWN INDICATION
     Dosage: 3700 MBQ, UNK
     Dates: start: 20100428
  3. SANDOSTATIN LAR DEPOT [Suspect]
     Active Substance: OCTREOTIDE ACETATE
     Indication: FLUSHING

REACTIONS (8)
  - Carcinoid heart disease [Fatal]
  - Blood pressure systolic increased [Unknown]
  - Endocardial disease [Unknown]
  - Endocardial fibrosis [Unknown]
  - Tricuspid valve thickening [Unknown]
  - Mitral valve prolapse [Unknown]
  - Cardiomegaly [Unknown]
  - Restrictive cardiomyopathy [Unknown]

NARRATIVE: CASE EVENT DATE: 20121204
